FAERS Safety Report 4314513-4 (Version None)
Quarter: 2004Q1

REPORT INFORMATION
  Report Type: 
  Country: None (occurrence: None)
  Receive Date: 20040308
  Receipt Date: 20040227
  Transmission Date: 20041129
  Serious: Yes (Other)
  Sender: FDA-Public Use
  Company Number: US-JNJFOC-20031102135

PATIENT
  Age: 18 Year
  Sex: Female
  Weight: 55.3388 kg

DRUGS (4)
  1. ORTHO EVRA [Suspect]
     Indication: CONTRACEPTION
     Dosage: 1 DOSE (S), 3 IN 4 WEEK, TRANSDERMAL
     Route: 062
     Dates: start: 20020520, end: 20030114
  2. ORTHO EVRA [Suspect]
     Indication: MENSTRUATION IRREGULAR
     Dosage: 1 DOSE (S), 3 IN 4 WEEK, TRANSDERMAL
     Route: 062
     Dates: start: 20020520, end: 20030114
  3. TOPAMAX [Suspect]
     Indication: CONVULSION
     Dosage: 50 MG, 2 IN 1 DAY, ORAL
     Route: 048
     Dates: start: 20030303
  4. FOLIC ACID [Concomitant]

REACTIONS (5)
  - ACNE [None]
  - ALCOHOL USE [None]
  - COMA [None]
  - DRUG INTERACTION [None]
  - GRAND MAL CONVULSION [None]
